FAERS Safety Report 23707536 (Version 1)
Quarter: 2024Q2

REPORT INFORMATION
  Report Type: Spontaneous
  Country: CA (occurrence: CA)
  Receive Date: 20240404
  Receipt Date: 20240404
  Transmission Date: 20240716
  Serious: Yes (Other)
  Sender: FDA-Public Use
  Company Number: CA-GREER Laboratories, Inc.-2155230

PATIENT
  Age: 14 Year
  Sex: Male

DRUGS (5)
  1. MIXTURE OF FOUR STANDARDIZED GRASSES [Suspect]
     Active Substance: AGROSTIS GIGANTEA POLLEN\DACTYLIS GLOMERATA POLLEN\PHLEUM PRATENSE POLLEN\POA PRATENSIS POLLEN
     Indication: Product used for unknown indication
     Route: 058
     Dates: start: 20230814
  2. STANDARDIZED MITE MIX [Suspect]
     Active Substance: DERMATOPHAGOIDES FARINAE\DERMATOPHAGOIDES PTERONYSSINUS
     Route: 058
     Dates: start: 20230814
  3. NASONEX [Concomitant]
     Active Substance: MOMETASONE FUROATE
     Route: 045
  4. RUSSIAN THISTLE POLLEN [Suspect]
     Active Substance: SALSOLA KALI POLLEN
     Route: 058
     Dates: start: 20230814
  5. WHITE BIRCH POLLEN [Suspect]
     Active Substance: BETULA POPULIFOLIA POLLEN
     Route: 058
     Dates: start: 20230814

REACTIONS (2)
  - Anaphylactic reaction [Recovered/Resolved]
  - Viral infection [Recovered/Resolved]

NARRATIVE: CASE EVENT DATE: 20240125
